FAERS Safety Report 9360114 (Version 1)
Quarter: 2013Q2

REPORT INFORMATION
  Report Type: Spontaneous
  Country: TR (occurrence: TR)
  Receive Date: 20130621
  Receipt Date: 20130621
  Transmission Date: 20140414
  Serious: Yes (Hospitalization)
  Sender: FDA-Public Use
  Company Number: TR-INDICUS PHARMA-000093

PATIENT
  Age: 24 Year
  Sex: Male

DRUGS (3)
  1. HYDROCHLOROTHIAZIDE [Suspect]
     Dosage: TOOK 1.6 GRAM
  2. TELMISARTAN [Suspect]
     Dosage: TOOK 2.6 GRAM
  3. METFORMIN HYDROCHLORIDE [Suspect]
     Dosage: TOOK 16 GRAM

REACTIONS (3)
  - Suicide attempt [Unknown]
  - Toxicity to various agents [Recovered/Resolved]
  - Alanine aminotransferase abnormal [Recovered/Resolved]
